FAERS Safety Report 5254373-0 (Version None)
Quarter: 2007Q1

REPORT INFORMATION
  Report Type: 
  Country: None (occurrence: None)
  Receive Date: 20070302
  Receipt Date: 20070222
  Transmission Date: 20070707
  Serious: Yes (Hospitalization, Other)
  Sender: FDA-Public Use
  Company Number: GB-ABBOTT-07P-167-0358204-00

PATIENT
  Age: 68 Year
  Sex: Male

DRUGS (2)
  1. EPILIM CHRONO TABLETS [Suspect]
     Indication: EPILEPSY
     Route: 048
     Dates: start: 19840604
  2. DOXYCYCLINE [Suspect]
     Indication: SINUSITIS
     Route: 048
     Dates: start: 20061107

REACTIONS (2)
  - CONVULSION [None]
  - DRUG INTERACTION [None]
